FAERS Safety Report 9285272 (Version 4)
Quarter: 2021Q4

REPORT INFORMATION
  Report Type: Report from Study
  Country: US (occurrence: US)
  Receive Date: 20130513
  Receipt Date: 20211027
  Transmission Date: 20220303
  Serious: Yes (Hospitalization)
  Sender: FDA-Public Use
  Company Number: US-JNJFOC-20121100651

PATIENT
  Age: 65 Year
  Sex: Female
  Weight: 143.9 kg

DRUGS (12)
  1. REMICADE [Suspect]
     Active Substance: INFLIXIMAB
     Indication: Psoriasis
     Route: 042
     Dates: start: 20071010
  2. REMICADE [Suspect]
     Active Substance: INFLIXIMAB
     Route: 042
     Dates: start: 20071027
  3. REMICADE [Suspect]
     Active Substance: INFLIXIMAB
     Route: 042
     Dates: start: 20100203
  4. REMICADE [Suspect]
     Active Substance: INFLIXIMAB
     Route: 042
     Dates: start: 20100928
  5. REMICADE [Suspect]
     Active Substance: INFLIXIMAB
     Dosage: UNSPECIFIED DOSE FREQUENCY CHANGE
     Route: 042
     Dates: start: 20101228
  6. REMICADE [Suspect]
     Active Substance: INFLIXIMAB
     Route: 042
     Dates: start: 20110211
  7. REMICADE [Suspect]
     Active Substance: INFLIXIMAB
     Route: 042
     Dates: start: 20110627
  8. REMICADE [Suspect]
     Active Substance: INFLIXIMAB
     Dosage: UNSPECIFIED DOSE FREQUENCY CHANGE
     Route: 042
     Dates: start: 20111123
  9. REMICADE [Suspect]
     Active Substance: INFLIXIMAB
     Dosage: UNSPECIFIED DOSE FREQUENCY CHANGE
     Route: 042
     Dates: start: 20120109
  10. REMICADE [Suspect]
     Active Substance: INFLIXIMAB
     Dosage: UNSPECIFIED DOSE FREQUENCY CHANGE
     Route: 042
     Dates: start: 20121015
  11. METHOTREXATE [Suspect]
     Active Substance: METHOTREXATE
     Indication: Product used for unknown indication
     Route: 065
  12. TACLONEX [Suspect]
     Active Substance: BETAMETHASONE DIPROPIONATE\CALCIPOTRIENE\CALCIPOTRIENE HYDRATE
     Indication: Product used for unknown indication
     Route: 065

REACTIONS (1)
  - Pulmonary embolism [Recovered/Resolved]

NARRATIVE: CASE EVENT DATE: 20121022
